FAERS Safety Report 4401471-7 (Version None)
Quarter: 2004Q3

REPORT INFORMATION
  Report Type: 
  Country: None (occurrence: None)
  Receive Date: 20040907
  Receipt Date: 20040519
  Transmission Date: 20050211
  Serious: No
  Sender: FDA-Public Use
  Company Number: US-BRISTOL-MYERS SQUIBB COMPANY-12591541

PATIENT
  Age: 63 Year
  Sex: Male
  Weight: 100 kg

DRUGS (7)
  1. COUMADIN [Suspect]
     Indication: ATRIAL FIBRILLATION
     Dosage: DOSE:10MG + 7.5MG ALTERNATING DOSE:7.5MG + 10MG ALTERNATING DOSE:7.5 FOR 2 DAYS + 10MG FOR 5 DAYS
     Route: 048
     Dates: start: 20020901
  2. ASPIRIN [Concomitant]
  3. NIASPAN [Concomitant]
  4. PROSCAR [Concomitant]
  5. TRIAMTERENE AND HYDROCHLOROTHIAZIDE [Concomitant]
     Dosage: DOSGE: 37.5MG/25MG
  6. DILTIAZEM HCL [Concomitant]
  7. MULTIVITAMIN [Concomitant]

REACTIONS (1)
  - PROTHROMBIN TIME SHORTENED [None]
